FAERS Safety Report 5926283-4 (Version None)
Quarter: 2008Q4

REPORT INFORMATION
  Report Type: 
  Country: None (occurrence: None)
  Receive Date: 20081017
  Receipt Date: 20081006
  Transmission Date: 20090506
  Serious: Yes (Other)
  Sender: FDA-Public Use
  Company Number: ADE2008-0194

PATIENT
  Age: 54 Year
  Sex: Male

DRUGS (3)
  1. MIRTAZAPINE [Suspect]
     Dosage: 15-30 MG QD-QOD-PO
     Route: 048
     Dates: start: 20070201, end: 20070608
  2. DOSULEPIN [Concomitant]
  3. ESCITALOPRAM [Concomitant]

REACTIONS (12)
  - AGGRESSION [None]
  - ALCOHOL INTERACTION [None]
  - ALCOHOL POISONING [None]
  - ALTERED STATE OF CONSCIOUSNESS [None]
  - AMNESIA [None]
  - DRUG INTERACTION [None]
  - DRUG LEVEL INCREASED [None]
  - HOMICIDE [None]
  - JOINT SWELLING [None]
  - NIGHTMARE [None]
  - OEDEMA PERIPHERAL [None]
  - SOMNAMBULISM [None]
